FAERS Safety Report 8428293 (Version 5)
Quarter: 2015Q1

REPORT INFORMATION
  Report Type: Spontaneous
  Country: FI (occurrence: FI)
  Receive Date: 20120227
  Receipt Date: 20150109
  Transmission Date: 20150721
  Serious: Yes (Death, Other)
  Sender: FDA-Public Use
  Company Number: FI-PFIZER INC-2012048931

PATIENT
  Age: 26 Year
  Sex: Male

DRUGS (7)
  1. PREGABALIN. [Suspect]
     Active Substance: PREGABALIN
     Dosage: UNK
  2. TEMAZEPAM. [Suspect]
     Active Substance: TEMAZEPAM
  3. NORDAZEPAM [Concomitant]
     Active Substance: NORDAZEPAM
  4. BUPRENORPHINE [Suspect]
     Active Substance: BUPRENORPHINE
  5. OXAZEPAM. [Concomitant]
     Active Substance: OXAZEPAM
  6. TETRAHYDROCANNABINOL [Concomitant]
     Active Substance: DRONABINOL
  7. DIAZEPAM. [Concomitant]
     Active Substance: DIAZEPAM

REACTIONS (2)
  - Drug abuse [Unknown]
  - Accidental poisoning [Fatal]

NARRATIVE: CASE EVENT DATE: 2010
